FAERS Safety Report 4315941-3 (Version None)
Quarter: 2004Q1

REPORT INFORMATION
  Report Type: 
  Country: None (occurrence: None)
  Receive Date: 20040310
  Receipt Date: 20040302
  Transmission Date: 20041129
  Serious: Yes (Other)
  Sender: FDA-Public Use
  Company Number: 2004UW03955

PATIENT
  Age: 10 Year
  Sex: Female
  Weight: 35 kg

DRUGS (3)
  1. SEROQUEL [Suspect]
     Indication: BIPOLAR DISORDER
     Dosage: 75 MG- 75 MG - 150 MG
  2. RISPERIDONE [Concomitant]
  3. DIVALPROEX SODIUM [Concomitant]

REACTIONS (1)
  - NEUTROPENIA [None]
